FAERS Safety Report 14618347 (Version 1)
Quarter: 2018Q1

REPORT INFORMATION
  Report Type: Spontaneous
  Country: US (occurrence: US)
  Receive Date: 20180309
  Receipt Date: 20180309
  Transmission Date: 20180509
  Serious: Yes (Other)
  Sender: FDA-Public Use
  Company Number: US-VIIV HEALTHCARE LIMITED-US2018GSK039514

PATIENT
  Age: 52 Year
  Sex: Male

DRUGS (1)
  1. JULUCA [Suspect]
     Active Substance: DOLUTEGRAVIR SODIUM\RILPIVIRINE HYDROCHLORIDE
     Indication: HIV INFECTION
     Dosage: 1 DF, 1D
     Dates: start: 20180227, end: 20180301

REACTIONS (2)
  - Swelling [Recovered/Resolved]
  - Hypersensitivity [Unknown]

NARRATIVE: CASE EVENT DATE: 20180301
